FAERS Safety Report 6687219-4 (Version None)
Quarter: 2010Q2

REPORT INFORMATION
  Report Type: 
  Country: None (occurrence: None)
  Receive Date: 20100419
  Receipt Date: 20091005
  Transmission Date: 20101027
  Serious: No
  Sender: FDA-Public Use
  Company Number: US-ABBOTT-09P-163-0601715-00

PATIENT
  Age: 78 Year
  Sex: Male

DRUGS (2)
  1. ZEMPLAR [Suspect]
     Indication: RENAL FAILURE
     Dosage: UNKNOWN
     Route: 042
     Dates: start: 20090201
  2. ZEMPLAR [Suspect]
     Dosage: UNKNOWN
     Route: 048
     Dates: start: 20090101

REACTIONS (1)
  - PEMPHIGOID [None]
